FAERS Safety Report 16410826 (Version 1)
Quarter: 2019Q2

REPORT INFORMATION
  Report Type: Spontaneous
  Country: US (occurrence: US)
  Receive Date: 20190610
  Receipt Date: 20190610
  Transmission Date: 20190711
  Serious: Yes (Hospitalization)
  Sender: FDA-Public Use
  Company Number: US-PROCTER+GAMBLE-GS19058340

PATIENT
  Age: 41 Year
  Sex: Male

DRUGS (2)
  1. ANTIBIOTICS [Suspect]
     Active Substance: UNSPECIFIED INGREDIENT
  2. BISMUTH SUBSALICYLATE, UNSPECIFIED [Suspect]
     Active Substance: BISMUTH SUBSALICYLATE
     Indication: NAUSEA
     Dosage: SCHEDULED FOR NAUSEA

REACTIONS (3)
  - Renal tubular disorder [Unknown]
  - Blood creatinine increased [Unknown]
  - Cystatin C increased [Unknown]
